FAERS Safety Report 8242092-8 (Version None)
Quarter: 2012Q1

REPORT INFORMATION
  Report Type: 
  Country: None (occurrence: None)
  Receive Date: 20120329
  Receipt Date: 20120321
  Transmission Date: 20120608
  Serious: No
  Sender: FDA-Public Use
  Company Number: US-BIOGENIDEC-2012BI010731

PATIENT
  Age: 68 Year
  Sex: Female

DRUGS (1)
  1. AVONEX [Suspect]
     Indication: MULTIPLE SCLEROSIS
     Route: 030
     Dates: start: 20050103

REACTIONS (5)
  - WOUND INFECTION [None]
  - ABDOMINAL DISCOMFORT [None]
  - IMPAIRED HEALING [None]
  - DEPRESSION [None]
  - DYSPNOEA [None]
